FAERS Safety Report 17039401 (Version 1)
Quarter: 2019Q4

REPORT INFORMATION
  Report Type: Spontaneous
  Country: US (occurrence: US)
  Receive Date: 20191115
  Receipt Date: 20191115
  Transmission Date: 20200122
  Serious: No
  Sender: FDA-Public Use
  Company Number: US-SA-2019SA314869

PATIENT
  Age: 56 Year
  Sex: Male

DRUGS (2)
  1. THYROGEN [Suspect]
     Active Substance: THYROTROPIN ALFA
     Indication: THERAPEUTIC PROCEDURE
     Dosage: 0.9 MG, QD
     Route: 065
     Dates: start: 20191104, end: 20191105
  2. RADIOACTIVE IODINE SOLUTION [Concomitant]
     Active Substance: SODIUM IODIDE I-131
     Dosage: UNK UNK, UNK
     Route: 065

REACTIONS (1)
  - Blood thyroid stimulating hormone abnormal [Unknown]

NARRATIVE: CASE EVENT DATE: 20191106
